FAERS Safety Report 11754724 (Version 1)
Quarter: 2015Q4

REPORT INFORMATION
  Report Type: Spontaneous
  Country: AU (occurrence: AU)
  Receive Date: 20151119
  Receipt Date: 20151119
  Transmission Date: 20160304
  Serious: Yes (Other)
  Sender: FDA-Public Use
  Company Number: AU-MUNDIPHARMA DS AND PHARMACOVIGILANCE-GBR-2015-0032121

PATIENT
  Sex: Male
  Weight: 105 kg

DRUGS (7)
  1. MS CONTIN [Suspect]
     Active Substance: MORPHINE SULFATE
     Dosage: 135 MG, DAILY (45MG TDS)
     Route: 048
  2. ENDEP [Suspect]
     Active Substance: AMITRIPTYLINE HYDROCHLORIDE
     Indication: DEPRESSION
     Route: 048
  3. LYRICA [Suspect]
     Active Substance: PREGABALIN
     Indication: PRODUCT USED FOR UNKNOWN INDICATION
     Dosage: UNK
     Route: 048
  4. MS CONTIN [Suspect]
     Active Substance: MORPHINE SULFATE
     Dosage: 390 MG, DAILY ((130MG TDS))
     Route: 048
  5. MS CONTIN [Suspect]
     Active Substance: MORPHINE SULFATE
     Indication: BACK PAIN
     Dosage: 180 MG, DAILY (45 MG FOUR TIMES ADAY)
     Route: 048
     Dates: start: 201511
  6. MS CONTIN [Suspect]
     Active Substance: MORPHINE SULFATE
     Dosage: 150 MG, DAILY ((45MG IN THE MORNING AND AT MIDDAY, 60MG AT NIGHT)
     Route: 048
     Dates: end: 201511
  7. MIRTAZAPINE. [Suspect]
     Active Substance: MIRTAZAPINE
     Indication: DEPRESSION
     Route: 048

REACTIONS (11)
  - Malaise [Unknown]
  - Suicidal ideation [Recovered/Resolved]
  - Tinnitus [Not Recovered/Not Resolved]
  - Inappropriate schedule of drug administration [Unknown]
  - Inadequate analgesia [Not Recovered/Not Resolved]
  - Drug tolerance [Unknown]
  - Inadequate analgesia [Unknown]
  - Hypertension [Recovered/Resolved]
  - Headache [Recovered/Resolved]
  - Body temperature abnormal [Recovered/Resolved]
  - Insomnia [Unknown]

NARRATIVE: CASE EVENT DATE: 201511
